FAERS Safety Report 14497685 (Version 6)
Quarter: 2018Q2

REPORT INFORMATION
  Report Type: Spontaneous
  Country: JP (occurrence: JP)
  Receive Date: 20180207
  Receipt Date: 20180402
  Transmission Date: 20180711
  Serious: Yes (Other)
  Sender: FDA-Public Use
  Company Number: JP-JNJFOC-20180201879

PATIENT
  Age: 50 Year
  Sex: Male

DRUGS (2)
  1. ITRIZOLE [Suspect]
     Active Substance: ITRACONAZOLE
     Indication: DERMATOPHYTOSIS OF NAIL
     Dosage: PULSE THERAPY, 3 CYCLES
     Route: 048
     Dates: end: 201801
  2. ITRIZOLE [Suspect]
     Active Substance: ITRACONAZOLE
     Indication: DERMATOPHYTOSIS OF NAIL
     Route: 048
     Dates: end: 20180129

REACTIONS (12)
  - Scab [Unknown]
  - Vision blurred [Unknown]
  - Skin abrasion [Unknown]
  - Eye opacity [Unknown]
  - Angina pectoris [Recovering/Resolving]
  - Off label use [Unknown]
  - Arrhythmia [Recovering/Resolving]
  - Bursitis [Recovering/Resolving]
  - Heart valve incompetence [Unknown]
  - Wrong technique in product usage process [Unknown]
  - Eye pain [Unknown]
  - Prescription drug used without a prescription [Unknown]

NARRATIVE: CASE EVENT DATE: 20180201
